FAERS Safety Report 8273807-0 (Version None)
Quarter: 2012Q2

REPORT INFORMATION
  Report Type: 
  Country: None (occurrence: None)
  Receive Date: 20120411
  Receipt Date: 20120402
  Transmission Date: 20120825
  Serious: Yes (Hospitalization)
  Sender: FDA-Public Use
  Company Number: US-ASTRAZENECA-2012SE22085

PATIENT
  Age: 50 Year
  Sex: Female

DRUGS (2)
  1. PULMICORT [Suspect]
     Route: 055
  2. SYMBICORT [Suspect]
     Route: 055

REACTIONS (3)
  - INTENTIONAL DRUG MISUSE [None]
  - OFF LABEL USE [None]
  - MALAISE [None]
